FAERS Safety Report 7705180-8 (Version None)
Quarter: 2011Q3

REPORT INFORMATION
  Report Type: 
  Country: None (occurrence: None)
  Receive Date: 20110824
  Receipt Date: 20110818
  Transmission Date: 20111222
  Serious: Yes (Other)
  Sender: FDA-Public Use
  Company Number: US-BRISTOL-MYERS SQUIBB COMPANY-15986417

PATIENT
  Age: 73 Year
  Sex: Female

DRUGS (5)
  1. NEXIUM [Suspect]
     Indication: HIV INFECTION
     Dates: start: 20030101
  2. NORVIR [Suspect]
     Indication: HIV INFECTION
  3. ISENTRESS [Suspect]
     Indication: HIV INFECTION
  4. REYATAZ [Suspect]
     Indication: HIV INFECTION
     Dates: start: 20030101
  5. EPIVIR [Suspect]
     Indication: HIV INFECTION

REACTIONS (5)
  - CARDIAC MURMUR [None]
  - CARDIAC FAILURE [None]
  - SKIN CANCER [None]
  - COLON CANCER [None]
  - RENAL FAILURE [None]
